FAERS Safety Report 6243385-6 (Version None)
Quarter: 2009Q2

REPORT INFORMATION
  Report Type: 
  Country: None (occurrence: None)
  Receive Date: 20090617
  Receipt Date: 20080417
  Transmission Date: 20091009
  Serious: No
  Sender: FDA-Public Use
  Company Number: 274215

PATIENT
  Age: 73 Year
  Sex: Female
  Weight: 100.7 kg

DRUGS (3)
  1. LEVEMIR [Suspect]
     Indication: INSULIN-REQUIRING TYPE 2 DIABETES MELLITUS
     Dosage: 0 , SUBCUTANEOUS
     Route: 058
     Dates: start: 20060101
  2. AVALIDE [Concomitant]
  3. ACTOPLUS MET (METFORMIN HYDROCHLORIDE, PIOGLITAZONE HYDROCHLORIDE) [Concomitant]

REACTIONS (4)
  - BLOOD GLUCOSE FLUCTUATION [None]
  - INJECTION SITE HAEMATOMA [None]
  - OEDEMA PERIPHERAL [None]
  - WEIGHT INCREASED [None]
